FAERS Safety Report 8129773-1 (Version None)
Quarter: 2012Q1

REPORT INFORMATION
  Report Type: 
  Country: None (occurrence: None)
  Receive Date: 20120210
  Receipt Date: 20120210
  Transmission Date: 20120608
  Serious: No
  Sender: FDA-Public Use
  Company Number: None

PATIENT
  Age: 20 Year
  Sex: Female
  Weight: 56.699 kg

DRUGS (1)
  1. OMNIPAQUE 140 [Suspect]

REACTIONS (1)
  - ARACHNOIDITIS [None]
